FAERS Safety Report 7477577-5 (Version None)
Quarter: 2011Q2

REPORT INFORMATION
  Report Type: 
  Country: None (occurrence: None)
  Receive Date: 20110513
  Receipt Date: 20110429
  Transmission Date: 20111010
  Serious: Yes (Other)
  Sender: FDA-Public Use
  Company Number: US-JNJFOC-20110501290

PATIENT
  Sex: Female
  Weight: 66.68 kg

DRUGS (7)
  1. METHIMAZOLE [Suspect]
     Route: 065
  2. METHIMAZOLE [Suspect]
     Indication: PRODUCT USED FOR UNKNOWN INDICATION
     Route: 065
  3. AMLODIPINE BESYLATE [Concomitant]
     Indication: BLOOD PRESSURE
     Route: 048
  4. TITANIUM DIOXIDE [Suspect]
     Indication: PRODUCT USED FOR UNKNOWN INDICATION
     Route: 065
  5. TITANIUM DIOXIDE [Suspect]
     Route: 065
  6. LEVAQUIN [Suspect]
     Indication: PRODUCT USED FOR UNKNOWN INDICATION
     Route: 048
  7. AGGRENOX [Concomitant]
     Indication: BLOOD PRESSURE
     Dosage: 25MG/200MG/TABLET/25MG/200  MG/TWICE A DAY/ORAL
     Route: 048

REACTIONS (2)
  - BLOOD URINE PRESENT [None]
  - ADVERSE EVENT [None]
